FAERS Safety Report 14525247 (Version 1)
Quarter: 2018Q1

REPORT INFORMATION
  Report Type: Spontaneous
  Country: US (occurrence: US)
  Receive Date: 20180213
  Receipt Date: 20180213
  Transmission Date: 20180509
  Serious: Yes (Other)
  Sender: FDA-Public Use
  Company Number: US-JNJFOC-20180212627

PATIENT
  Age: 60 Year
  Sex: Male

DRUGS (1)
  1. INVOKAMET [Suspect]
     Active Substance: CANAGLIFLOZIN\METFORMIN HYDROCHLORIDE
     Indication: PRODUCT USED FOR UNKNOWN INDICATION
     Dosage: 150-1000 MG
     Route: 048

REACTIONS (7)
  - Peripheral vascular disorder [Unknown]
  - Osteonecrosis [Unknown]
  - Toe amputation [Unknown]
  - Osteomyelitis [Unknown]
  - Abscess limb [Unknown]
  - Diabetic foot [Unknown]
  - Skin ulcer [Unknown]

NARRATIVE: CASE EVENT DATE: 20171208
